FAERS Safety Report 4444336-7 (Version None)
Quarter: 2004Q3

REPORT INFORMATION
  Report Type: 
  Country: None (occurrence: None)
  Receive Date: 20040729
  Receipt Date: 20030923
  Transmission Date: 20050211
  Serious: Yes (Hospitalization)
  Sender: FDA-Public Use
  Company Number: HQWYE855224SEP03

PATIENT
  Age: 53 Year
  Sex: Female
  Weight: 57.2 kg

DRUGS (4)
  1. MINOCYCLINE (MINOCYCLINE, CAPSULE, COATED PELLETS) [Suspect]
     Indication: ROSACEA
     Dosage: 100 MG 1X PER 1 DAY, ORAL
     Route: 048
     Dates: start: 20030401
  2. PREDNISONE [Suspect]
     Indication: HEPATITIS
     Dosage: 60 MG TAPERING DOSAGE, ORAL
     Route: 048
     Dates: start: 20030701
  3. PREDNISONE [Suspect]
     Dosage: 10 MG, ORAL
     Route: 048
  4. VIVELLE [Concomitant]

REACTIONS (10)
  - CONDITION AGGRAVATED [None]
  - DYSPNOEA [None]
  - HALLUCINATION [None]
  - HEADACHE [None]
  - HEPATITIS [None]
  - LETHARGY [None]
  - LUNG DISORDER [None]
  - LYMPHADENOPATHY [None]
  - PAIN [None]
  - RASH ERYTHEMATOUS [None]
